FAERS Safety Report 4438818-1 (Version None)
Quarter: 2004Q3

REPORT INFORMATION
  Report Type: 
  Country: None (occurrence: None)
  Receive Date: 20040830
  Receipt Date: 20040820
  Transmission Date: 20050211
  Serious: Yes (Other)
  Sender: FDA-Public Use
  Company Number: STA-AE-04-MTX-376

PATIENT
  Age: 52 Year

DRUGS (2)
  1. METHOTREXATE [Suspect]
  2. UNSPECIFIED ANTIINFLAMMATORY AGENT [Concomitant]

REACTIONS (2)
  - PULMONARY TUBERCULOSIS [None]
  - TUBERCULOSIS [None]
